FAERS Safety Report 6475159-5 (Version None)
Quarter: 2009Q4

REPORT INFORMATION
  Report Type: 
  Country: None (occurrence: None)
  Receive Date: 20091204
  Receipt Date: 20090608
  Transmission Date: 20100525
  Serious: No
  Sender: FDA-Public Use
  Company Number: FR-ELI_LILLY_AND_COMPANY-FR200903007793

PATIENT
  Age: 57 Year
  Sex: Female
  Weight: 117 kg

DRUGS (4)
  1. CYMBALTA [Suspect]
     Indication: DEPRESSION
     Dosage: 60 MG, DAILY (1/D)
     Route: 048
     Dates: start: 20090101, end: 20090316
  2. LITHIUM [Concomitant]
     Indication: BIPOLAR DISORDER
     Dosage: 1500 MG, DAILY (1/D)
     Route: 048
  3. LEVOTHYROXINE SODIUM [Concomitant]
     Indication: HYPOTHYROIDISM
     Dosage: 175 UG, DAILY (1/D)
     Route: 048
  4. LERCANIDIPINE [Concomitant]
     Indication: HYPERTENSION
     Dosage: 20 MG, DAILY (1/D)
     Route: 048
     Dates: start: 20090215, end: 20090429

REACTIONS (7)
  - ABDOMINAL PAIN [None]
  - ALANINE AMINOTRANSFERASE INCREASED [None]
  - ASPARTATE AMINOTRANSFERASE INCREASED [None]
  - BLOOD ALKALINE PHOSPHATASE INCREASED [None]
  - ERUCTATION [None]
  - NAUSEA [None]
  - VOMITING [None]
